FAERS Safety Report 19363397 (Version 2)
Quarter: 2021Q3

REPORT INFORMATION
  Report Type: Spontaneous
  Country: DE (occurrence: DE)
  Receive Date: 20210602
  Receipt Date: 20210828
  Transmission Date: 20211014
  Serious: Yes (Other)
  Sender: FDA-Public Use
  Company Number: DE-AMGEN-DEUSP2021081036

PATIENT
  Sex: Female

DRUGS (1)
  1. REPATHA [Suspect]
     Active Substance: EVOLOCUMAB
     Indication: TYPE IIA HYPERLIPIDAEMIA
     Dosage: UNK
     Route: 065

REACTIONS (7)
  - Urethritis [Recovering/Resolving]
  - Vulvovaginal inflammation [Recovering/Resolving]
  - Pyelonephritis [Recovering/Resolving]
  - Mucosal inflammation [Recovering/Resolving]
  - Pain in jaw [Recovering/Resolving]
  - Colitis [Recovering/Resolving]
  - Sjogren^s syndrome [Recovering/Resolving]
